FAERS Safety Report 18886199 (Version 1)
Quarter: 2021Q1

REPORT INFORMATION
  Report Type: Spontaneous
  Country: FR (occurrence: FR)
  Receive Date: 20210212
  Receipt Date: 20210212
  Transmission Date: 20210420
  Serious: Yes (Hospitalization)
  Sender: FDA-Public Use
  Company Number: FR-PFIZER INC-2021120551

PATIENT
  Age: 38 Year
  Sex: Female
  Weight: 81 kg

DRUGS (3)
  1. CORTANCYL [Concomitant]
     Active Substance: PREDNISONE
     Dosage: STRENGTH: 20 MG
     Route: 065
  2. ACIDE FOLIQUE [Concomitant]
     Active Substance: FOLIC ACID
     Dosage: UNK
     Route: 065
  3. IMETH [Suspect]
     Active Substance: METHOTREXATE SODIUM
     Indication: SYSTEMIC LUPUS ERYTHEMATOSUS
     Dosage: 15 MG, WEEKLY
     Route: 048
     Dates: start: 20201209, end: 20210106

REACTIONS (3)
  - Dyspnoea [Recovered/Resolved]
  - Off label use [Unknown]
  - Asthenia [Recovered/Resolved]

NARRATIVE: CASE EVENT DATE: 20201209
